FAERS Safety Report 13993465 (Version 1)
Quarter: 2017Q3

REPORT INFORMATION
  Report Type: Spontaneous
  Country: GB (occurrence: GB)
  Receive Date: 20170920
  Receipt Date: 20170920
  Transmission Date: 20171128
  Serious: Yes (Other)
  Sender: FDA-Public Use
  Company Number: GB-PFIZER INC-2006011492

PATIENT
  Sex: Female

DRUGS (3)
  1. CO-DYDRAMOL [Concomitant]
     Active Substance: ACETAMINOPHEN\DIHYDROCODEINE
     Route: 048
     Dates: start: 20060107, end: 20060107
  2. MIFEPRISTONE [Concomitant]
     Active Substance: MIFEPRISTONE
     Route: 048
     Dates: start: 20060107, end: 20060107
  3. MISOPROSTOL. [Suspect]
     Active Substance: MISOPROSTOL
     Indication: ABORTION INDUCED
     Dosage: SINGLE DOSE
     Route: 067
     Dates: start: 20060107, end: 20060107

REACTIONS (3)
  - Dyspnoea [Recovering/Resolving]
  - Lip swelling [Recovering/Resolving]
  - Eye swelling [Recovering/Resolving]

NARRATIVE: CASE EVENT DATE: 20060107
